FAERS Safety Report 10499317 (Version 2)
Quarter: 2014Q4

REPORT INFORMATION
  Report Type: Spontaneous
  Country: US (occurrence: US)
  Receive Date: 20141006
  Receipt Date: 20141006
  Transmission Date: 20150528
  Serious: No
  Sender: FDA-Public Use
  Company Number: US-AMGEN INC.-USASP2014025651

PATIENT
  Age: 80 Year
  Sex: Female

DRUGS (8)
  1. HYDROCHLOROTHIAZIDE. [Concomitant]
     Active Substance: HYDROCHLOROTHIAZIDE
     Dosage: 125 MG, DAILY
  2. XGEVA [Suspect]
     Active Substance: DENOSUMAB
     Indication: PROPHYLAXIS
     Dosage: 120 MG, Q4WK
     Route: 065
  3. ANASTROZOLE. [Concomitant]
     Active Substance: ANASTROZOLE
     Dosage: 1 MG, DAILY
  4. XGEVA [Suspect]
     Active Substance: DENOSUMAB
     Indication: METASTASES TO BONE
  5. CALTRATE                           /00944201/ [Concomitant]
     Dosage: 600 MG, BID
  6. CENTRUM SILVER                     /02363801/ [Concomitant]
     Active Substance: VITAMINS
  7. NEURONTIN [Concomitant]
     Active Substance: GABAPENTIN
     Dosage: 100 MG,DAILY
  8. ALLEGRA [Concomitant]
     Active Substance: FEXOFENADINE HYDROCHLORIDE
     Dosage: 80 MG, AS NECESSARY

REACTIONS (6)
  - Decreased appetite [Unknown]
  - Breast pain [Unknown]
  - Blood cholesterol increased [Unknown]
  - Headache [Unknown]
  - Nausea [Unknown]
  - Hypertension [Unknown]

NARRATIVE: CASE EVENT DATE: 201404
